FAERS Safety Report 5773387-5 (Version None)
Quarter: 2008Q2

REPORT INFORMATION
  Report Type: 
  Country: None (occurrence: None)
  Receive Date: 20080616
  Receipt Date: 20080312
  Transmission Date: 20081010
  Serious: No
  Sender: FDA-Public Use
  Company Number: US-BAYER-200713962BCC

PATIENT
  Age: 34 Year
  Sex: Female
  Weight: 82 kg

DRUGS (4)
  1. ALEVE COLD AND SINUS [Suspect]
     Indication: NASAL CONGESTION
     Route: 048
     Dates: start: 20071127
  2. HEMAX [Concomitant]
  3. VALTREX [Concomitant]
  4. IRON [Concomitant]

REACTIONS (2)
  - ANOREXIA [None]
  - FLUSHING [None]
